FAERS Safety Report 14070631 (Version 2)
Quarter: 2017Q4

REPORT INFORMATION
  Report Type: Other
  Country: CA (occurrence: CA)
  Receive Date: 20171011
  Receipt Date: 20171117
  Transmission Date: 20180321
  Serious: Yes (Other)
  Sender: FDA-Public Use
  Company Number: CA-APOTEX-2017AP019397

PATIENT
  Age: 53 Year
  Sex: Female

DRUGS (1)
  1. APO-SALVENT 5MG/ML [Suspect]
     Active Substance: ALBUTEROL SULFATE
     Indication: RESPIRATORY DISORDER
     Dosage: UNK, PRN (INHALATION)
     Route: 055

REACTIONS (2)
  - Product quality issue [Recovered/Resolved]
  - Choking [Recovered/Resolved]
